FAERS Safety Report 21031038 (Version 5)
Quarter: 2025Q2

REPORT INFORMATION
  Report Type: Report from Study
  Country: US (occurrence: US)
  Receive Date: 20220701
  Receipt Date: 20250421
  Transmission Date: 20250716
  Serious: Yes (Other)
  Sender: TAKEDA
  Company Number: US-TAKEDA-US202008380

PATIENT
  Sex: Female

DRUGS (4)
  1. HUMAN IMMUNOGLOBULIN G [Suspect]
     Active Substance: HUMAN IMMUNOGLOBULIN G
     Indication: Immunodeficiency common variable
  2. HUMAN IMMUNOGLOBULIN G [Suspect]
     Active Substance: HUMAN IMMUNOGLOBULIN G
     Indication: Primary immunodeficiency syndrome
  3. CUVITRU [Suspect]
     Active Substance: HUMAN IMMUNOGLOBULIN G
     Indication: Immunodeficiency common variable
  4. CUVITRU [Suspect]
     Active Substance: HUMAN IMMUNOGLOBULIN G
     Indication: Primary immunodeficiency syndrome

REACTIONS (10)
  - COVID-19 pneumonia [Unknown]
  - Adrenal insufficiency [Unknown]
  - Bronchiectasis [Unknown]
  - Bladder spasm [Unknown]
  - Infusion site discharge [Unknown]
  - Contusion [Unknown]
  - Fatigue [Unknown]
  - Bronchitis [Unknown]
  - Limb discomfort [Unknown]
  - Tendon injury [Unknown]
